FAERS Safety Report 7065878-4 (Version None)
Quarter: 2010Q4

REPORT INFORMATION
  Report Type: 
  Country: None (occurrence: None)
  Receive Date: 20101027
  Receipt Date: 20101014
  Transmission Date: 20110411
  Serious: Yes (Other)
  Sender: FDA-Public Use
  Company Number: PHHY2010SE69898

PATIENT
  Sex: Male

DRUGS (2)
  1. GLEEVEC [Suspect]
     Indication: CHRONIC MYELOID LEUKAEMIA
  2. TASIGNA [Suspect]

REACTIONS (6)
  - CHEST PAIN [None]
  - DYSPNOEA [None]
  - HAEMATOMA [None]
  - MYOCARDIAL INFARCTION [None]
  - SECRETION DISCHARGE [None]
  - SKIN FRAGILITY [None]
